FAERS Safety Report 24123287 (Version 1)
Quarter: 2024Q3

REPORT INFORMATION
  Report Type: Spontaneous
  Country: US (occurrence: US)
  Receive Date: 20240723
  Receipt Date: 20240723
  Transmission Date: 20241017
  Serious: No
  Sender: OTSUKA
  Company Number: US-OTSUKA-2023_023269

PATIENT
  Age: 42 Year
  Sex: Male
  Weight: 72.57 kg

DRUGS (1)
  1. REXULTI [Suspect]
     Active Substance: BREXPIPRAZOLE
     Indication: Depression
     Dosage: 1.5 MG, QD (COMBINES 1 MG AND 0.5 MG TO GET 1.5MG DAILY)
     Route: 065

REACTIONS (1)
  - Product packaging quantity issue [Unknown]

NARRATIVE: CASE EVENT DATE: 20230801
